FAERS Safety Report 18504976 (Version 2)
Quarter: 2025Q2

REPORT INFORMATION
  Report Type: Spontaneous
  Country: PT (occurrence: PT)
  Receive Date: 20201115
  Receipt Date: 20250621
  Transmission Date: 20250717
  Serious: Yes (Hospitalization, Other)
  Sender: AUROBINDO
  Company Number: PT-VIIV HEALTHCARE LIMITED-PT2020GSK209315

PATIENT
  Age: 23 Year
  Sex: Female

DRUGS (3)
  1. ABACAVIR [Suspect]
     Active Substance: ABACAVIR
     Indication: HIV infection
     Route: 065
  2. LAMIVUDINE [Suspect]
     Active Substance: LAMIVUDINE
     Indication: HIV infection
     Route: 065
  3. DOLUTEGRAVIR [Suspect]
     Active Substance: DOLUTEGRAVIR
     Indication: HIV infection
     Route: 065

REACTIONS (15)
  - Immune reconstitution inflammatory syndrome [Recovering/Resolving]
  - Ischaemic stroke [Recovering/Resolving]
  - Hemiparesis [Recovering/Resolving]
  - Aphasia [Recovering/Resolving]
  - Herpes simplex [Recovering/Resolving]
  - Vasculitis [Recovering/Resolving]
  - Infected vasculitis [Recovering/Resolving]
  - Cerebral artery stenosis [Recovering/Resolving]
  - Central nervous system vasculitis [Recovering/Resolving]
  - Cerebral ischaemia [Recovering/Resolving]
  - Cerebral artery occlusion [Recovering/Resolving]
  - Facial paresis [Recovering/Resolving]
  - Pleocytosis [Recovering/Resolving]
  - Condition aggravated [Recovering/Resolving]
  - Treatment noncompliance [Unknown]
